FAERS Safety Report 11528299 (Version 1)
Quarter: 2015Q3

REPORT INFORMATION
  Report Type: Spontaneous
  Country: US (occurrence: US)
  Receive Date: 20150921
  Receipt Date: 20150921
  Transmission Date: 20151125
  Serious: No
  Sender: FDA-Public Use
  Company Number: US-ACTELION PHARMACEUTICALS US, INC.-A-US2011-58450

PATIENT
  Age: 46 Year
  Sex: Female

DRUGS (2)
  1. VENTAVIS [Suspect]
     Active Substance: ILOPROST
     Indication: PULMONARY ARTERIAL HYPERTENSION
     Dosage: 5 MCG, UNK
     Route: 055
     Dates: start: 20111207
  2. LETAIRIS [Concomitant]
     Active Substance: AMBRISENTAN

REACTIONS (9)
  - Drug dose omission [Recovering/Resolving]
  - Dysgeusia [Unknown]
  - Arthralgia [Unknown]
  - Salivary hypersecretion [Unknown]
  - Influenza like illness [Unknown]
  - Trismus [Unknown]
  - Malaise [Unknown]
  - Influenza [Recovering/Resolving]
  - Visual impairment [Unknown]

NARRATIVE: CASE EVENT DATE: 20111214
